FAERS Safety Report 4394783-7 (Version None)
Quarter: 2004Q3

REPORT INFORMATION
  Report Type: 
  Country: None (occurrence: None)
  Receive Date: 20040706
  Receipt Date: 20040622
  Transmission Date: 20050211
  Serious: Yes (Life-Threatening, Hospitalization)
  Sender: FDA-Public Use
  Company Number: 04P-056-0264661-00

PATIENT
  Age: 63 Year
  Sex: Male

DRUGS (2)
  1. HUMIRA [Suspect]
     Indication: RHEUMATOID ARTHRITIS
     Dosage: 80 MG, SUBCUTANEOUS
     Route: 058
     Dates: start: 20030328, end: 20040205
  2. PREDNISONE [Concomitant]

REACTIONS (2)
  - NECROTISING FASCIITIS [None]
  - STAPHYLOCOCCAL SEPSIS [None]
